FAERS Safety Report 7892547-0 (Version None)
Quarter: 2011Q4

REPORT INFORMATION
  Report Type: 
  Country: None (occurrence: None)
  Receive Date: 20111104
  Receipt Date: 20111024
  Transmission Date: 20120403
  Serious: No
  Sender: FDA-Public Use
  Company Number: JP-JNJFOC-20101200632

PATIENT
  Sex: Male

DRUGS (17)
  1. MORPHINE HCL ELIXIR [Concomitant]
     Route: 048
     Dates: start: 20100522
  2. ONEALFA [Concomitant]
     Route: 048
     Dates: start: 20081031, end: 20100922
  3. MORPHINE HCL ELIXIR [Concomitant]
     Route: 048
     Dates: start: 20110424
  4. ALENDRONATE SODIUM [Concomitant]
     Route: 048
     Dates: start: 20081031
  5. TRAMADOL HYDROCHLORIDE [Concomitant]
     Route: 065
     Dates: start: 20101227
  6. MORPHINE HCL ELIXIR [Concomitant]
     Route: 048
     Dates: start: 20100424
  7. MORPHINE HCL ELIXIR [Concomitant]
     Route: 048
     Dates: start: 20100501
  8. NORTRIPTYLINE HCL [Concomitant]
     Route: 048
     Dates: start: 20091104, end: 20100922
  9. MELDEST [Concomitant]
     Route: 048
     Dates: start: 20071214, end: 20100922
  10. MORPHINE HCL ELIXIR [Concomitant]
     Route: 048
     Dates: start: 20101024
  11. LIDOCAINE [Concomitant]
     Route: 065
  12. ZOLPIDEM [Concomitant]
     Route: 048
     Dates: start: 20101110
  13. FENTANYL-100 [Suspect]
     Indication: PAIN
     Route: 062
     Dates: start: 20100424
  14. FLURBIPROFEN [Concomitant]
     Route: 065
  15. PRAMIPEXOLE DIHYDROCHLORIDE [Concomitant]
     Route: 065
     Dates: start: 20101023
  16. MORPHINE HCL ELIXIR [Concomitant]
     Indication: PAIN
     Route: 048
     Dates: start: 20100515
  17. MORPHINE HCL ELIXIR [Concomitant]
     Route: 048
     Dates: start: 20100508

REACTIONS (2)
  - DRUG PRESCRIBING ERROR [None]
  - RESTLESS LEGS SYNDROME [None]
